FAERS Safety Report 4527868-2 (Version None)
Quarter: 2004Q4

REPORT INFORMATION
  Report Type: 
  Country: None (occurrence: None)
  Receive Date: 20041123
  Receipt Date: 20040907
  Transmission Date: 20050328
  Serious: Yes (Other)
  Sender: FDA-Public Use
  Company Number: HQWYE852007SEP04

PATIENT
  Age: 46 Year
  Sex: Male

DRUGS (5)
  1. ZOSYN [Suspect]
  2. ADEFOVIR DIPIVOXIL (ADEFOVIR DIPIVOXIL) [Concomitant]
  3. LAMIVUDINE [Concomitant]
  4. AMBIEN [Concomitant]
  5. OMEPRAZOLE [Concomitant]

REACTIONS (1)
  - RASH [None]
